FAERS Safety Report 11750392 (Version 3)
Quarter: 2020Q2

REPORT INFORMATION
  Report Type: Spontaneous
  Country: FR (occurrence: FR)
  Receive Date: 20151118
  Receipt Date: 20200629
  Transmission Date: 20200713
  Serious: Yes (Other)
  Sender: FDA-Public Use
  Company Number: FR-BRISTOL-MYERS SQUIBB COMPANY-BMS-2015-053880

PATIENT
  Age: 31 Year
  Sex: Female

DRUGS (44)
  1. AZTREONAM. [Suspect]
     Active Substance: AZTREONAM
     Indication: SERRATIA INFECTION
  2. CIPROFLOXACIN. [Concomitant]
     Active Substance: CIPROFLOXACIN
     Indication: MENINGITIS
     Route: 065
  3. LINEZOLID. [Concomitant]
     Active Substance: LINEZOLID
     Indication: MENINGITIS
     Route: 065
  4. COTRIMOXAZOLE [Concomitant]
     Active Substance: SULFAMETHOXAZOLE\TRIMETHOPRIM
     Indication: MENINGITIS
     Route: 065
  5. AZTREONAM. [Suspect]
     Active Substance: AZTREONAM
     Indication: URINARY TRACT INFECTION
  6. PARACETAMOL [Suspect]
     Active Substance: ACETAMINOPHEN
     Indication: PRODUCT USED FOR UNKNOWN INDICATION
     Route: 065
  7. FOSFOMYCIN [Suspect]
     Active Substance: FOSFOMYCIN
     Indication: ENTEROCOCCAL INFECTION
  8. ENOXAPARIN SODIUM. [Suspect]
     Active Substance: ENOXAPARIN SODIUM
     Indication: PRODUCT USED FOR UNKNOWN INDICATION
     Route: 065
  9. RIFAMPICIN [Suspect]
     Active Substance: RIFAMPIN
     Indication: URINARY TRACT INFECTION
  10. VANCOMYCIN [Suspect]
     Active Substance: VANCOMYCIN
     Indication: MENINGITIS
     Route: 042
  11. FOSFOMYCIN [Suspect]
     Active Substance: FOSFOMYCIN
     Indication: ENCEPHALOMYELITIS
  12. RIFAMPICIN [Suspect]
     Active Substance: RIFAMPIN
     Indication: MENINGITIS
     Route: 065
  13. RIFAMPICIN [Suspect]
     Active Substance: RIFAMPIN
     Indication: ENTEROCOCCAL INFECTION
  14. CIPROFLOXACIN. [Concomitant]
     Active Substance: CIPROFLOXACIN
     Indication: URINARY TRACT INFECTION
  15. LINEZOLID. [Concomitant]
     Active Substance: LINEZOLID
     Indication: ENTEROCOCCAL INFECTION
  16. CEFTRIAXONE. [Concomitant]
     Active Substance: CEFTRIAXONE
     Indication: ENTEROCOCCAL INFECTION
  17. CEFTRIAXONE. [Concomitant]
     Active Substance: CEFTRIAXONE
     Indication: URINARY TRACT INFECTION
  18. CIPROFLOXACIN. [Concomitant]
     Active Substance: CIPROFLOXACIN
     Indication: PSEUDOMONAS INFECTION
  19. GENTAMICIN. [Concomitant]
     Active Substance: GENTAMICIN
     Indication: PSEUDOMONAS INFECTION
  20. TRIMETHOPRIM SULFAMETHOXAZOLE [Concomitant]
     Active Substance: SULFAMETHOXAZOLE\TRIMETHOPRIM
     Indication: PSEUDOMONAS INFECTION
     Route: 065
  21. AZTREONAM. [Suspect]
     Active Substance: AZTREONAM
     Indication: ENTEROCOCCAL INFECTION
  22. FOSFOMYCIN [Suspect]
     Active Substance: FOSFOMYCIN
     Indication: URINARY TRACT INFECTION
  23. VANCOMYCIN [Suspect]
     Active Substance: VANCOMYCIN
     Indication: ENTEROCOCCAL INFECTION
  24. VANCOMYCIN [Suspect]
     Active Substance: VANCOMYCIN
     Indication: ENCEPHALOMYELITIS
  25. CEFOTAXIME [Concomitant]
     Active Substance: CEFOTAXIME SODIUM
     Indication: ENTEROCOCCAL INFECTION
  26. CEFTRIAXONE. [Concomitant]
     Active Substance: CEFTRIAXONE
     Indication: MENINGITIS
  27. LINEZOLID. [Concomitant]
     Active Substance: LINEZOLID
     Indication: URINARY TRACT INFECTION
  28. COTRIMOXAZOLE [Concomitant]
     Active Substance: SULFAMETHOXAZOLE\TRIMETHOPRIM
     Indication: ENTEROCOCCAL INFECTION
  29. GENTAMICIN. [Concomitant]
     Active Substance: GENTAMICIN
     Indication: MENINGITIS
     Route: 065
  30. PANTOPRAZOLE [Suspect]
     Active Substance: PANTOPRAZOLE
     Indication: SKIN TEST
     Route: 065
  31. CEFOTAXIME [Concomitant]
     Active Substance: CEFOTAXIME SODIUM
     Indication: URINARY TRACT INFECTION
  32. GENTAMICIN. [Concomitant]
     Active Substance: GENTAMICIN
     Indication: ENTEROCOCCAL INFECTION
  33. AZTREONAM. [Suspect]
     Active Substance: AZTREONAM
     Indication: MENINGITIS
     Route: 065
  34. DAPTOMYCIN. [Suspect]
     Active Substance: DAPTOMYCIN
     Indication: PRODUCT USED FOR UNKNOWN INDICATION
     Route: 065
  35. VANCOMYCIN [Suspect]
     Active Substance: VANCOMYCIN
     Indication: PSEUDOMONAS INFECTION
  36. LINEZOLID. [Concomitant]
     Active Substance: LINEZOLID
     Indication: PSEUDOMONAS INFECTION
  37. COTRIMOXAZOLE [Concomitant]
     Active Substance: SULFAMETHOXAZOLE\TRIMETHOPRIM
     Indication: URINARY TRACT INFECTION
  38. COTRIMOXAZOLE [Concomitant]
     Active Substance: SULFAMETHOXAZOLE\TRIMETHOPRIM
     Indication: PSEUDOMONAS INFECTION
  39. GENTAMICIN. [Concomitant]
     Active Substance: GENTAMICIN
     Indication: URINARY TRACT INFECTION
  40. FOSFOMYCIN [Suspect]
     Active Substance: FOSFOMYCIN
     Indication: MENINGITIS
     Dosage: UNK
     Route: 042
  41. FOSFOMYCIN [Suspect]
     Active Substance: FOSFOMYCIN
     Indication: MENINGITIS BACTERIAL
  42. VANCOMYCIN [Suspect]
     Active Substance: VANCOMYCIN
     Indication: URINARY TRACT INFECTION
  43. CEFOTAXIME [Concomitant]
     Active Substance: CEFOTAXIME SODIUM
     Indication: MENINGITIS
     Route: 065
  44. CIPROFLOXACIN. [Concomitant]
     Active Substance: CIPROFLOXACIN
     Indication: ENTEROCOCCAL INFECTION

REACTIONS (1)
  - Drug reaction with eosinophilia and systemic symptoms [Recovered/Resolved]
